FAERS Safety Report 13299521 (Version 1)
Quarter: 2017Q1

REPORT INFORMATION
  Report Type: Spontaneous
  Country: MX (occurrence: MX)
  Receive Date: 20170306
  Receipt Date: 20170306
  Transmission Date: 20170428
  Serious: Yes (Other)
  Sender: FDA-Public Use
  Company Number: MX-PFIZER INC-2017094401

PATIENT
  Sex: Female

DRUGS (9)
  1. ANAPROX [Concomitant]
     Active Substance: NAPROXEN SODIUM
  2. DALACIN [Suspect]
     Active Substance: CLINDAMYCIN
  3. ROCEPHIN [Concomitant]
     Active Substance: CEFTRIAXONE SODIUM
  4. PAXIL [Concomitant]
     Active Substance: PAROXETINE HYDROCHLORIDE
  5. CONCERTA [Concomitant]
     Active Substance: METHYLPHENIDATE HYDROCHLORIDE
  6. CELESTAMINE [Concomitant]
     Active Substance: BETAMETHASONE\DEXCHLORPHENIRAMINE MALEATE
  7. ZOVIRAX [Concomitant]
     Active Substance: ACYCLOVIR
  8. MOTRIN [Suspect]
     Active Substance: IBUPROFEN
  9. ANTIFLU-DES [Concomitant]

REACTIONS (1)
  - Blindness [Not Recovered/Not Resolved]
